FAERS Safety Report 13913898 (Version 1)
Quarter: 2017Q3

REPORT INFORMATION
  Report Type: Spontaneous
  Country: US (occurrence: US)
  Receive Date: 20170829
  Receipt Date: 20170829
  Transmission Date: 20171127
  Serious: No
  Sender: FDA-Public Use
  Company Number: US-PFIZER INC-2017370005

PATIENT
  Age: 31 Year
  Sex: Female

DRUGS (3)
  1. ADVIL MENSTRUAL PAIN [Suspect]
     Active Substance: IBUPROFEN SODIUM
     Indication: ABDOMINAL DISTENSION
  2. ADVIL MENSTRUAL PAIN [Suspect]
     Active Substance: IBUPROFEN SODIUM
     Indication: DYSMENORRHOEA
     Dosage: 1 DF, UNK (OVER THE COURSE OF MONDAY I TOOK A TOTAL OF FOUR TABLETS)
  3. ADVIL MENSTRUAL PAIN [Suspect]
     Active Substance: IBUPROFEN SODIUM
     Indication: FATIGUE

REACTIONS (1)
  - Drug effect incomplete [Unknown]
